FAERS Safety Report 25654277 (Version 1)
Quarter: 2025Q3

REPORT INFORMATION
  Report Type: Spontaneous
  Country: JP (occurrence: JP)
  Receive Date: 20250807
  Receipt Date: 20250807
  Transmission Date: 20251021
  Serious: Yes (Other)
  Sender: GLAXOSMITHKLINE
  Company Number: JP-TAKEDA-2025TJP007911

PATIENT
  Age: 57 Year
  Sex: Female

DRUGS (1)
  1. ZEJULA [Suspect]
     Active Substance: NIRAPARIB
     Indication: Ovarian cancer

REACTIONS (6)
  - Abdominal abscess [Unknown]
  - Pelvic abscess [Unknown]
  - Malignant ascites [Unknown]
  - C-reactive protein decreased [Unknown]
  - White blood cell count decreased [Unknown]
  - Neutrophil count decreased [Unknown]
